FAERS Safety Report 4930179-4 (Version None)
Quarter: 2006Q1

REPORT INFORMATION
  Report Type: 
  Country: None (occurrence: None)
  Receive Date: 20060228
  Receipt Date: 20060203
  Transmission Date: 20060701
  Serious: Yes (Life-Threatening)
  Sender: FDA-Public Use
  Company Number: JP200601002972

PATIENT
  Age: 75 Year
  Sex: Female
  Weight: 41.5 kg

DRUGS (4)
  1. EVISTA [Suspect]
     Indication: OSTEOPOROSIS
     Dosage: 60 MG, DAILY (1/D), ORAL
     Route: 048
     Dates: start: 20051129, end: 20060101
  2. ALFACALCIDOL (ALFACALCIDOL) [Concomitant]
  3. VIT K CAP [Concomitant]
  4. BIOFERMIN (BACILLUS SUBTILIS, LACTOBACILLUS ACIDOPHILUS, STEPTOCOCCUS [Concomitant]

REACTIONS (3)
  - CEREBRAL INFARCTION [None]
  - CONVULSION [None]
  - FALL [None]
